FAERS Safety Report 4823662-3 (Version None)
Quarter: 2005Q4

REPORT INFORMATION
  Report Type: 
  Country: None (occurrence: None)
  Receive Date: 20051109
  Receipt Date: 20051103
  Transmission Date: 20060501
  Serious: Yes (Hospitalization)
  Sender: FDA-Public Use
  Company Number: CH-GLAXOSMITHKLINE-B0399589A

PATIENT
  Age: 31 Year
  Sex: Female

DRUGS (1)
  1. DEROXAT [Suspect]
     Dosage: 20MG PER DAY
     Route: 048
     Dates: start: 20030228, end: 20030303

REACTIONS (5)
  - AGITATION [None]
  - COORDINATION ABNORMAL [None]
  - DYSAESTHESIA [None]
  - SEROTONIN SYNDROME [None]
  - TREMOR [None]
